FAERS Safety Report 6120405-0 (Version None)
Quarter: 2009Q1

REPORT INFORMATION
  Report Type: 
  Country: None (occurrence: None)
  Receive Date: 20090317
  Receipt Date: 20090303
  Transmission Date: 20090719
  Serious: Yes (Other)
  Sender: FDA-Public Use
  Company Number: PHHY2009DE07991

PATIENT
  Sex: Female

DRUGS (3)
  1. FEMARA [Suspect]
     Indication: BREAST CANCER
     Dosage: 2.5 MG, QD
     Route: 048
     Dates: start: 20080201
  2. ZOMETA [Suspect]
     Indication: OSTEOPOROSIS
     Dosage: 4 MG TWICE DAILY
     Route: 042
     Dates: start: 20090223
  3. CALCIUM WITH VITAMIN D [Concomitant]

REACTIONS (7)
  - BONE DENSITOMETRY [None]
  - BONE PAIN [None]
  - BURNING SENSATION [None]
  - HEADACHE [None]
  - HYPERAESTHESIA [None]
  - OSTEOPOROSIS [None]
  - PALPITATIONS [None]
